FAERS Safety Report 21891363 (Version 1)
Quarter: 2023Q1

REPORT INFORMATION
  Report Type: Spontaneous
  Country: US (occurrence: None)
  Receive Date: 20230119
  Receipt Date: 20230119
  Transmission Date: 20230418
  Serious: No
  Sender: FDA-Public Use
  Company Number: None

PATIENT
  Age: 46 Year
  Sex: Female
  Weight: 96.16 kg

DRUGS (12)
  1. WELIREG [Suspect]
     Active Substance: BELZUTIFAN
     Indication: Thyroid cancer
     Dosage: FREQUENCY : DAILY;?
     Route: 048
  2. AMLODIPINE [Concomitant]
     Active Substance: AMLODIPINE BESYLATE
  3. CREON [Concomitant]
     Active Substance: PANCRELIPASE AMYLASE\PANCRELIPASE LIPASE\PANCRELIPASE PROTEASE
  4. CULTURELLE [Concomitant]
     Active Substance: LACTOBACILLUS RHAMNOSUS
  5. HUMALOG [Concomitant]
     Active Substance: INSULIN LISPRO
  6. LIOTHYRONINE [Concomitant]
     Active Substance: LIOTHYRONINE
  7. LOSARTAN [Concomitant]
     Active Substance: LOSARTAN
  8. FISH OIL [Concomitant]
     Active Substance: FISH OIL
  9. VITAMIN D3 [Concomitant]
     Active Substance: CHOLECALCIFEROL
  10. TIRPSINT [Concomitant]
  11. TRAZODONE [Concomitant]
     Active Substance: TRAZODONE HYDROCHLORIDE
  12. ZINC 220 [Concomitant]

REACTIONS (2)
  - Fatigue [None]
  - Haemoglobin decreased [None]
